FAERS Safety Report 24030924 (Version 2)
Quarter: 2024Q4

REPORT INFORMATION
  Report Type: Report from Study
  Country: JP (occurrence: JP)
  Receive Date: 20240628
  Receipt Date: 20241128
  Transmission Date: 20250114
  Serious: No
  Sender: ALEXION PHARMACEUTICALS
  Company Number: 2024A127697

PATIENT
  Age: 44 Year
  Weight: 42 kg

DRUGS (7)
  1. OLAPARIB [Suspect]
     Active Substance: OLAPARIB
     Indication: Breast cancer
     Dosage: 300 MILLIGRAM, UNK
  2. OLAPARIB [Suspect]
     Active Substance: OLAPARIB
     Dosage: UNK
  3. AZILSARTAN KAMEDOXOMIL [Concomitant]
     Active Substance: AZILSARTAN KAMEDOXOMIL
     Dosage: 10 MILLIGRAM, UNK
  4. CALCIUM CARBONATE [Concomitant]
     Active Substance: CALCIUM CARBONATE
     Dosage: 2 DF
  5. URSODIOL [Concomitant]
     Active Substance: URSODIOL
     Dosage: 100 MILLIGRAM, UNK
  6. AMMONIUM GLYCYRRHIZATE [Concomitant]
     Active Substance: AMMONIUM GLYCYRRHIZATE
     Dosage: 1 DF
  7. ACETAMINOPHEN [Concomitant]
     Active Substance: ACETAMINOPHEN
     Dosage: 400 MILLIGRAM, UNK

REACTIONS (1)
  - Neutrophil count decreased [Recovered/Resolved]
